FAERS Safety Report 7994725-9 (Version None)
Quarter: 2011Q4

REPORT INFORMATION
  Report Type: 
  Country: None (occurrence: None)
  Receive Date: 20111220
  Receipt Date: 20111212
  Transmission Date: 20120403
  Serious: Yes (Other)
  Sender: FDA-Public Use
  Company Number: CN-JNJFOC-20111205687

PATIENT
  Age: 12 Year
  Sex: Female

DRUGS (1)
  1. DOXORUBICIN HCL [Suspect]
     Indication: LYMPHOMA
     Dosage: 35/ DOSE, FOR 4 TIMES IN TOTAL
     Route: 042
     Dates: start: 20110901

REACTIONS (2)
  - LYMPHOMA [None]
  - FUNGAL INFECTION [None]
